FAERS Safety Report 15049613 (Version 1)
Quarter: 2018Q2

REPORT INFORMATION
  Report Type: Spontaneous
  Country: JP (occurrence: JP)
  Receive Date: 20180622
  Receipt Date: 20180622
  Transmission Date: 20180711
  Serious: Yes (Other)
  Sender: FDA-Public Use
  Company Number: JP-CELGENEUS-JPN-20180606001

PATIENT
  Age: 66 Year
  Sex: Female

DRUGS (2)
  1. OTEZLA [Suspect]
     Active Substance: APREMILAST
     Indication: PRODUCT USED FOR UNKNOWN INDICATION
     Dosage: UPWARD TITRATION
     Route: 048
     Dates: start: 20180403, end: 201804
  2. OTEZLA [Suspect]
     Active Substance: APREMILAST
     Dosage: 60 MILLIGRAM
     Route: 048
     Dates: start: 20180417

REACTIONS (5)
  - Oropharyngeal pain [Unknown]
  - Ophthalmic herpes simplex [Recovered/Resolved]
  - Rhinorrhoea [Unknown]
  - Ophthalmic herpes simplex [Unknown]
  - Sneezing [Unknown]

NARRATIVE: CASE EVENT DATE: 2018
